FAERS Safety Report 8113508-2 (Version None)
Quarter: 2012Q1

REPORT INFORMATION
  Report Type: 
  Country: None (occurrence: None)
  Receive Date: 20120131
  Receipt Date: 20120117
  Transmission Date: 20120608
  Serious: Yes (Hospitalization)
  Sender: FDA-Public Use
  Company Number: B0776681A

PATIENT
  Sex: Female

DRUGS (10)
  1. CEFTAZIDIME SODIUM [Suspect]
     Indication: STAPHYLOCOCCAL INFECTION
     Dosage: PER DAY/INTRAVENOUS
     Route: 042
     Dates: start: 20110510, end: 20110524
  2. AMIODARONE HCL [Concomitant]
  3. LEVOFLOXACIN [Suspect]
     Indication: STAPHYLOCOCCAL INFECTION
     Dosage: PER DAY/INTRAVENOUS
     Route: 042
     Dates: start: 20110510, end: 20110520
  4. FUROSEMIDE [Concomitant]
  5. TOBRAMYCIN SULPHATE INJECTION (TOBRAMYCIN SULFATE) [Suspect]
     Indication: STAPHYLOCOCCAL INFECTION
     Dosage: INTRAVENOUS
     Route: 042
     Dates: start: 20110530, end: 20110610
  6. ALLOPURINOL [Concomitant]
  7. SPIRONOLACTONE [Concomitant]
  8. TEICOPLANIN POWDER (TEICOPLANIN) [Suspect]
     Indication: STAPHYLOCOCCAL INFECTION
     Dosage: PER DAY/INTRAVENOUS
     Route: 042
     Dates: start: 20110523, end: 20110620
  9. ALLOPURIDOL [Concomitant]
  10. ASPIRIN [Concomitant]

REACTIONS (3)
  - MEGACOLON [None]
  - LARGE INTESTINE PERFORATION [None]
  - CLOSTRIDIUM COLITIS [None]
